FAERS Safety Report 10268237 (Version 2)
Quarter: 2015Q4

REPORT INFORMATION
  Report Type: Spontaneous
  Country: DK (occurrence: DK)
  Receive Date: 20140630
  Receipt Date: 20151120
  Transmission Date: 20160304
  Serious: Yes (Hospitalization)
  Sender: FDA-Public Use
  Company Number: PHHY2014DK077115

PATIENT
  Age: 83 Year
  Sex: Female

DRUGS (13)
  1. FLUANXOL MITE [Concomitant]
     Indication: RESTLESSNESS
     Dosage: VED BEHOV
  2. SIMVASTATIN ACTAVIS [Concomitant]
     Active Substance: SIMVASTATIN
     Indication: HYPERCHOLESTEROLAEMIA
     Route: 065
  3. HJERTEMAGNYL [Concomitant]
     Active Substance: ASPIRIN\MAGNESIUM OXIDE
     Indication: THROMBOSIS PROPHYLAXIS
  4. MAGNESIA ^DAK^ [Concomitant]
     Indication: CONSTIPATION
  5. COMBAR [Concomitant]
     Indication: DEPRESSION
  6. FERRO DURETTER [Concomitant]
     Indication: MINERAL SUPPLEMENTATION
  7. PREDNISOLONE ^DAK^ [Concomitant]
     Active Substance: PREDNISOLONE
     Indication: RHEUMATOID ARTHRITIS
     Route: 065
  8. TRADOLAN [Concomitant]
     Active Substance: TRAMADOL
     Indication: PAIN
  9. ALPRAZOLAM KRKA [Concomitant]
     Indication: SEDATIVE THERAPY
  10. METHOTREXATE (METHOTREXATE SODIUM) [Suspect]
     Active Substance: METHOTREXATE SODIUM
     Indication: RHEUMATOID ARTHRITIS
     Dosage: 8 DF, QD
     Route: 048
     Dates: start: 20140201, end: 20140206
  11. PINEX [Concomitant]
     Active Substance: ACETAMINOPHEN
     Indication: PAIN
     Dosage: VED BEHOV
  12. DONEPEZILHYDROCHLORID [Concomitant]
     Indication: DEMENTIA ALZHEIMER^S TYPE
     Route: 065
  13. SERTRALINE [Concomitant]
     Active Substance: SERTRALINE HYDROCHLORIDE
     Indication: DEPRESSION

REACTIONS (7)
  - Oral pain [Unknown]
  - Accidental overdose [Recovering/Resolving]
  - Toxicity to various agents [Recovered/Resolved]
  - Inappropriate schedule of drug administration [Recovered/Resolved]
  - Bone marrow failure [Recovered/Resolved]
  - Stomatitis [Unknown]
  - Thirst [Unknown]

NARRATIVE: CASE EVENT DATE: 201402
